FAERS Safety Report 12339889 (Version 1)
Quarter: 2016Q2

REPORT INFORMATION
  Report Type: Spontaneous
  Country: US (occurrence: US)
  Receive Date: 20160506
  Receipt Date: 20160506
  Transmission Date: 20160815
  Serious: Yes (Other)
  Sender: FDA-Public Use
  Company Number: US-BEH-2016061910

PATIENT
  Sex: Male
  Weight: 62 kg

DRUGS (23)
  1. HIZENTRA [Suspect]
     Active Substance: HUMAN IMMUNOGLOBULIN G
     Indication: IMMUNODEFICIENCY COMMON VARIABLE
     Route: 058
     Dates: start: 20160308
  2. BREO ELLIPTA [Concomitant]
     Active Substance: FLUTICASONE FUROATE\VILANTEROL TRIFENATATE
  3. ISOSORBIDE. [Concomitant]
     Active Substance: ISOSORBIDE
  4. CODEINE [Concomitant]
     Active Substance: CODEINE
  5. ASPIRIN. [Concomitant]
     Active Substance: ASPIRIN
  6. OMEPRAZOLE. [Concomitant]
     Active Substance: OMEPRAZOLE
  7. SIMVASTATIN. [Concomitant]
     Active Substance: SIMVASTATIN
  8. DIPHENHYDRAMINE. [Concomitant]
     Active Substance: DIPHENHYDRAMINE
  9. METFORMIN [Concomitant]
     Active Substance: METFORMIN HYDROCHLORIDE
  10. BUMETANIDE. [Concomitant]
     Active Substance: BUMETANIDE
  11. METOLAZONE. [Concomitant]
     Active Substance: METOLAZONE
  12. METOPROLOL. [Concomitant]
     Active Substance: METOPROLOL
  13. PROBIOTIC [Concomitant]
     Active Substance: PROBIOTICS NOS
  14. LEVOTHYROXINE. [Concomitant]
     Active Substance: LEVOTHYROXINE
  15. ACETAMINOPHEN. [Concomitant]
     Active Substance: ACETAMINOPHEN
  16. TESTOSTERONE. [Concomitant]
     Active Substance: TESTOSTERONE
  17. TRAMADOL. [Concomitant]
     Active Substance: TRAMADOL
  18. ATORVASTATIN [Concomitant]
     Active Substance: ATORVASTATIN
  19. EPIPEN [Concomitant]
     Active Substance: EPINEPHRINE
  20. ROPINIROLE. [Concomitant]
     Active Substance: ROPINIROLE
  21. POTASSIUM [Concomitant]
     Active Substance: POTASSIUM
  22. MAGNESIUM [Concomitant]
     Active Substance: MAGNESIUM
  23. PROAIR HFA [Concomitant]
     Active Substance: ALBUTEROL SULFATE

REACTIONS (1)
  - Cellulitis [Unknown]
